FAERS Safety Report 7545247-0 (Version None)
Quarter: 2011Q2

REPORT INFORMATION
  Report Type: 
  Country: None (occurrence: None)
  Receive Date: 20110614
  Receipt Date: 20110603
  Transmission Date: 20111010
  Serious: Yes (Hospitalization, Other)
  Sender: FDA-Public Use
  Company Number: US-JNJFOC-20110602884

PATIENT
  Sex: Male
  Weight: 71.22 kg

DRUGS (4)
  1. FENTANYL-100 [Suspect]
     Indication: PAIN IN EXTREMITY
     Dosage: NDC 0781-7241-55
     Route: 062
     Dates: start: 20110501
  2. FENTANYL-100 [Suspect]
     Indication: PAIN IN EXTREMITY
     Route: 062
     Dates: start: 20110101, end: 20110101
  3. MANY OTHER UNSPECIFIED MEDICATIONS [Concomitant]
     Route: 065
  4. FENTANYL CITRATE [Suspect]
     Indication: PAIN IN EXTREMITY
     Route: 062
     Dates: start: 20110101, end: 20110501

REACTIONS (5)
  - SURGERY [None]
  - PRODUCT QUALITY ISSUE [None]
  - DRUG ADMINISTERED AT INAPPROPRIATE SITE [None]
  - DRUG INEFFECTIVE [None]
  - WEIGHT DECREASED [None]
